FAERS Safety Report 22272028 (Version 1)
Quarter: 2023Q2

REPORT INFORMATION
  Report Type: Spontaneous
  Country: FR (occurrence: FR)
  Receive Date: 20230502
  Receipt Date: 20230502
  Transmission Date: 20230721
  Serious: Yes (Hospitalization, Other)
  Sender: FDA-Public Use
  Company Number: FR-SUN PHARMACEUTICAL INDUSTRIES LTD-2022RR-375077

PATIENT
  Age: 63 Year
  Sex: Female
  Weight: 82 kg

DRUGS (16)
  1. FLUOXETINE [Suspect]
     Active Substance: FLUOXETINE HYDROCHLORIDE
     Indication: Product used for unknown indication
     Dosage: 40 MILLIGRAM, DAILY
     Route: 065
  2. LERCANIDIPINE [Suspect]
     Active Substance: LERCANIDIPINE
     Indication: Product used for unknown indication
     Dosage: 10 MILLIGRAM
     Route: 065
  3. AMLODIPINE [Suspect]
     Active Substance: AMLODIPINE BESYLATE
     Indication: Product used for unknown indication
     Dosage: 1 DOSAGE FORM, QD, IN THE MORNING
     Route: 065
  4. QUETIAPINE [Suspect]
     Active Substance: QUETIAPINE
     Indication: Product used for unknown indication
     Dosage: INCREASED PROGRESSIVELY TO 400 MG
     Route: 065
  5. MIANSERIN HYDROCHLORIDE [Suspect]
     Active Substance: MIANSERIN HYDROCHLORIDE
     Indication: Product used for unknown indication
     Dosage: 3 DOSAGE FORM, QD, IN THE EVENING
     Route: 065
  6. ACEBUTOLOL [Suspect]
     Active Substance: ACEBUTOLOL
     Indication: Product used for unknown indication
     Dosage: 0.5 DOSAGE FORM, QD, IN THE MORNING
     Route: 065
  7. VALSARTAN [Suspect]
     Active Substance: VALSARTAN
     Indication: Product used for unknown indication
     Route: 065
  8. ALPRAZOLAM [Suspect]
     Active Substance: ALPRAZOLAM
     Indication: Product used for unknown indication
     Dosage: 3 DOSAGE FORM, DAILY, IN THE MORNING, AT MIDDAY AND IN THE EVENING
     Route: 065
  9. DULOXETINE [Suspect]
     Active Substance: DULOXETINE
     Indication: Product used for unknown indication
     Dosage: 2 DOSAGE FORM, QD, IN THE MORNING
     Route: 065
  10. LANSOPRAZOLE [Suspect]
     Active Substance: LANSOPRAZOLE
     Indication: Product used for unknown indication
     Dosage: 2 DOSAGE FORM, DAILY, IN THE MORNING AND IN THE EVENING
     Route: 065
  11. RISPERDAL [Concomitant]
     Active Substance: RISPERIDONE
     Indication: Product used for unknown indication
     Dosage: UNK
     Route: 065
     Dates: start: 2020, end: 2020
  12. TRIMEPRAZINE [Concomitant]
     Active Substance: TRIMEPRAZINE
     Indication: Insomnia
     Route: 065
  13. LEVOTHYROXINE [Concomitant]
     Active Substance: LEVOTHYROXINE
     Indication: Product used for unknown indication
     Dosage: 137 MICROGRAM
     Route: 065
  14. LEVOTHYROXINE [Concomitant]
     Active Substance: LEVOTHYROXINE
     Dosage: 1 DOSAGE FORM, DAILY
     Route: 065
  15. ELIQUIS [Concomitant]
     Active Substance: APIXABAN
     Indication: Anticoagulant therapy
     Dosage: 1 DOSAGE FORM, QD (2 DOSAGE FORMS DAILY; IN THE MORNING AND IN THE EVENING)
     Route: 065
     Dates: end: 20220625
  16. ELIQUIS [Concomitant]
     Active Substance: APIXABAN
     Dosage: UNK
     Route: 065
     Dates: start: 20220629

REACTIONS (18)
  - Regurgitation [Recovered/Resolved]
  - Abdominal distension [Recovered/Resolved]
  - Abdominal pain [Recovered/Resolved]
  - Suicidal ideation [Recovered/Resolved]
  - Constipation [Recovered/Resolved]
  - Drug ineffective [Unknown]
  - Chest pain [Recovering/Resolving]
  - Oesophageal spasm [Unknown]
  - Anxiety [Recovering/Resolving]
  - Dysphagia [Recovering/Resolving]
  - Oesophageal achalasia [Unknown]
  - Morbid thoughts [Recovered/Resolved]
  - Oesophageal food impaction [Recovered/Resolved]
  - Nausea [Recovered/Resolved]
  - Micturition urgency [Not Recovered/Not Resolved]
  - Weight decreased [Unknown]
  - Dysuria [Recovered/Resolved]
  - Pollakiuria [Not Recovered/Not Resolved]
